FAERS Safety Report 8798265 (Version 1)
Quarter: 2012Q4

REPORT INFORMATION
  Report Type: 
  Country: CA (occurrence: CA)
  Receive Date: 20120920
  Receipt Date: 20120920
  Transmission Date: 20130627
  Serious: Yes (Life-Threatening)
  Sender: FDA-Public Use
  Company Number: CA-B.I. PHARMACEUTICALS,INC./RIDGEFIELD-2012-CN-01901CN

PATIENT
  Age: 60 Year
  Sex: Male
  Weight: 106 kg

DRUGS (3)
  1. MICARDIS [Suspect]
     Dosage: 160 mg
     Route: 048
  2. GLUCOSAMINE + CHONDROITIN [Concomitant]
     Route: 065
  3. VITAMIN D [Concomitant]
     Route: 065

REACTIONS (1)
  - Protein urine present [Unknown]
